FAERS Safety Report 6528666-0 (Version None)
Quarter: 2010Q1

REPORT INFORMATION
  Report Type: 
  Country: None (occurrence: None)
  Receive Date: 20100106
  Receipt Date: 20091229
  Transmission Date: 20100710
  Serious: Yes (Other)
  Sender: FDA-Public Use
  Company Number: US-JNJFOC-20091207779

PATIENT
  Age: 62 Year
  Sex: Female
  Weight: 79.83 kg

DRUGS (3)
  1. TYLENOL (CAPLET) [Suspect]
     Route: 048
  2. TYLENOL (CAPLET) [Suspect]
     Indication: ARTHRALGIA
     Dosage: 650-1300 MG EVERY 6-8 HOURS (AS NEEDED) FOR 1-2 YEARS
     Route: 048
  3. METHOTREXATE [Concomitant]
     Indication: ARTHRITIS

REACTIONS (4)
  - ABDOMINAL PAIN UPPER [None]
  - HAEMATOCHEZIA [None]
  - INAPPROPRIATE SCHEDULE OF DRUG ADMINISTRATION [None]
  - PRODUCT QUALITY ISSUE [None]
